FAERS Safety Report 23236111 (Version 1)
Quarter: 2023Q4

REPORT INFORMATION
  Report Type: Report from Study
  Country: US (occurrence: US)
  Receive Date: 20231128
  Receipt Date: 20231128
  Transmission Date: 20240110
  Serious: No
  Sender: FDA-Public Use
  Company Number: US-INCYTE CORPORATION-2023IN011231

PATIENT

DRUGS (1)
  1. JAKAFI [Suspect]
     Active Substance: RUXOLITINIB
     Indication: Essential thrombocythaemia
     Dosage: 10 MILLIGRAM, BID
     Route: 065

REACTIONS (6)
  - Melanocytic naevus [Unknown]
  - Skin exfoliation [Unknown]
  - Ill-defined disorder [Unknown]
  - Pruritus [Unknown]
  - Product availability issue [Unknown]
  - Off label use [Unknown]
